FAERS Safety Report 4434641-2 (Version None)
Quarter: 2004Q3

REPORT INFORMATION
  Report Type: 
  Country: None (occurrence: None)
  Receive Date: 20040826
  Receipt Date: 20040820
  Transmission Date: 20050211
  Serious: Yes (Other)
  Sender: FDA-Public Use
  Company Number: 002481

PATIENT
  Sex: Female

DRUGS (3)
  1. MEDROXYPROGESTERONE ACETATE [Suspect]
     Dates: start: 19930101, end: 19950101
  2. PREMARIN [Suspect]
     Dates: start: 19930101, end: 19950101
  3. PREMARIN [Suspect]
     Dates: start: 19930101, end: 19950101

REACTIONS (1)
  - BREAST CANCER [None]
